FAERS Safety Report 7018421-X (Version None)
Quarter: 2010Q3

REPORT INFORMATION
  Report Type: 
  Country: None (occurrence: None)
  Receive Date: 20100928
  Receipt Date: 20100921
  Transmission Date: 20110219
  Serious: Yes (Other)
  Sender: FDA-Public Use
  Company Number: US-WYE-H17620710

PATIENT
  Age: 18 Year
  Sex: Male
  Weight: 63.56 kg

DRUGS (2)
  1. ROBITUSSIN COUGH AND CHEST CONGESTION DM [Suspect]
     Indication: DRUG ABUSE
     Dosage: ENTIRE BOTTLE AS NEEDED
     Route: 048
  2. ROBITUSSIN COUGH AND CHEST CONGESTION DM [Suspect]
     Indication: HALLUCINATION

REACTIONS (4)
  - ABDOMINAL PAIN UPPER [None]
  - DRUG ABUSE [None]
  - DYSURIA [None]
  - OVERDOSE [None]
